FAERS Safety Report 7204742-4 (Version None)
Quarter: 2010Q4

REPORT INFORMATION
  Report Type: 
  Country: None (occurrence: None)
  Receive Date: 20101230
  Receipt Date: 20101221
  Transmission Date: 20110411
  Serious: Yes (Hospitalization)
  Sender: FDA-Public Use
  Company Number: US-ASTRAZENECA-2010SE60287

PATIENT
  Sex: Male

DRUGS (1)
  1. SEROQUEL XR [Suspect]
     Route: 048

REACTIONS (9)
  - ABNORMAL BEHAVIOUR [None]
  - AGGRESSION [None]
  - ANGER [None]
  - DISORIENTATION [None]
  - DRUG TOXICITY [None]
  - HALLUCINATION, AUDITORY [None]
  - INDIFFERENCE [None]
  - MEMORY IMPAIRMENT [None]
  - WRONG DRUG ADMINISTERED [None]
